FAERS Safety Report 14628834 (Version 1)
Quarter: 2018Q1

REPORT INFORMATION
  Report Type: Spontaneous
  Country: US (occurrence: US)
  Receive Date: 20180313
  Receipt Date: 20180313
  Transmission Date: 20180509
  Serious: Yes (Death)
  Sender: FDA-Public Use
  Company Number: US-BIOGEN-2018BI00537386

PATIENT
  Age: 5 Year
  Sex: Male

DRUGS (1)
  1. SPINRAZA [Suspect]
     Active Substance: NUSINERSEN
     Indication: SPINAL MUSCULAR ATROPHY
     Dosage: MAINTENANCE DOSE
     Route: 037
     Dates: start: 20170207, end: 20180209

REACTIONS (2)
  - Bacteraemia [Fatal]
  - Influenza [Fatal]

NARRATIVE: CASE EVENT DATE: 20180220
